FAERS Safety Report 8150881-3 (Version None)
Quarter: 2012Q1

REPORT INFORMATION
  Report Type: 
  Country: None (occurrence: None)
  Receive Date: 20120220
  Receipt Date: 20120215
  Transmission Date: 20120608
  Serious: Yes (Other)
  Sender: FDA-Public Use
  Company Number: PHHY2012KR013540

PATIENT
  Sex: Male

DRUGS (2)
  1. EXJADE [Suspect]
     Indication: IRON OVERLOAD
     Dosage: UNK UKN, UNK
     Route: 048
     Dates: start: 20100201
  2. IMMUNOSUPPRESSANTS [Concomitant]
     Dosage: UNK UKN, UNK
     Route: 065

REACTIONS (3)
  - DECREASED APPETITE [None]
  - GRAFT VERSUS HOST DISEASE [None]
  - STOMATITIS [None]
